FAERS Safety Report 25567548 (Version 4)
Quarter: 2025Q3

REPORT INFORMATION
  Report Type: Spontaneous
  Country: US (occurrence: US)
  Receive Date: 20250716
  Receipt Date: 20250902
  Transmission Date: 20251021
  Serious: Yes (Other)
  Sender: FENNEC PHARMACEUTICALS
  Company Number: US-FENNEC PHARMACEUTICALS, INC.-2025FEN00060

PATIENT
  Sex: Male
  Weight: 92 kg

DRUGS (12)
  1. PEDMARK [Suspect]
     Active Substance: SODIUM THIOSULFATE
     Indication: Deafness
     Route: 042
     Dates: start: 20250609, end: 20250615
  2. PEDMARK [Suspect]
     Active Substance: SODIUM THIOSULFATE
     Dosage: CYCLE #2: 41.4 G IV OVER 45 MINUTES/4 VIALS PER INFUSION
     Route: 042
     Dates: start: 20250630, end: 20250707
  3. PEDMARK [Suspect]
     Active Substance: SODIUM THIOSULFATE
     Dosage: CYCLE #3: 41.4 G IV OVER 45 MINUTES/4 VIALS PER INFUSION
     Route: 042
     Dates: start: 20250728, end: 20250801
  4. PEDMARK [Suspect]
     Active Substance: SODIUM THIOSULFATE
     Dosage: CYCLE #4: 41.4 G IV OVER 45 MINUTES/4 VIALS PER INFUSION
     Route: 042
     Dates: start: 20250818
  5. LORAZEPAM [Concomitant]
     Active Substance: LORAZEPAM
     Route: 048
  6. OLANZAPINE [Concomitant]
     Active Substance: OLANZAPINE
     Route: 048
  7. ONDANSETRON [Concomitant]
     Active Substance: ONDANSETRON
     Route: 048
  8. ZOFRAN [Concomitant]
     Active Substance: ONDANSETRON HYDROCHLORIDE
     Route: 042
  9. DIPHENHYDRAMINE [Concomitant]
     Active Substance: DIPHENHYDRAMINE
     Route: 042
  10. PEPCID [Concomitant]
     Active Substance: FAMOTIDINE
     Route: 042
  11. CISPLATIN [Concomitant]
     Active Substance: CISPLATIN
  12. UNSPECIFIED OTHER CHEMOTHERAPY MEDICATION [Concomitant]

REACTIONS (17)
  - Pulmonary embolism [Unknown]
  - Gastrooesophageal reflux disease [Unknown]
  - Hypoacusis [Unknown]
  - Balance disorder [Unknown]
  - Dizziness [Unknown]
  - Ear discomfort [Unknown]
  - Tinnitus [Unknown]
  - Headache [Recovered/Resolved]
  - Dyspepsia [Unknown]
  - Dyspnoea [Not Recovered/Not Resolved]
  - Taste disorder [Unknown]
  - Chest pain [Not Recovered/Not Resolved]
  - Constipation [Unknown]
  - Nausea [Unknown]
  - Vomiting [Unknown]
  - Product storage error [Recovered/Resolved]
  - Off label use [Unknown]

NARRATIVE: CASE EVENT DATE: 20250101
